FAERS Safety Report 8980235 (Version 7)
Quarter: 2013Q2

REPORT INFORMATION
  Report Type: Report from Study
  Country: GB (occurrence: GB)
  Receive Date: 20121221
  Receipt Date: 20130605
  Transmission Date: 20140414
  Serious: Yes (Hospitalization)
  Sender: FDA-Public Use
  Company Number: GB-AMGEN-GBRCT2012081594

PATIENT
  Age: 25 Year
  Sex: Male

DRUGS (13)
  1. DENOSUMAB [Suspect]
     Indication: BONE GIANT CELL TUMOUR
     Dosage: 120 MG, QMO
     Route: 058
     Dates: start: 20121022
  2. CALCITONIN [Concomitant]
     Dosage: UNK
     Dates: start: 201201
  3. MORPHINE SULFATE [Concomitant]
     Dosage: 10 MG, BID
  4. OMEPRAZOLE [Concomitant]
     Dosage: 20 MG, QD
  5. TRAZODONE [Concomitant]
     Dosage: 150 MG, QD
  6. PREGABALIN [Concomitant]
     Dosage: 300 MG, BID
  7. CLONAZEPAM [Concomitant]
     Dosage: 1.5 MG, QD
  8. DIAZEPAM [Concomitant]
     Dosage: 10 MG, AS NECESSARY
  9. OXYCODONE [Concomitant]
     Dosage: 10 MG, UNK
  10. DICLOFENAC [Concomitant]
     Dosage: 50 MG, TID
  11. CETIRIZINE [Concomitant]
     Dosage: 10 MG, QD
  12. HIDROCORTIZONA [Concomitant]
     Dosage: 10 MG, QD
  13. LEVOTHYROXINE [Concomitant]
     Dosage: 100 MG, QD

REACTIONS (1)
  - Suicide attempt [Recovered/Resolved]
